FAERS Safety Report 20107831 (Version 1)
Quarter: 2021Q4

REPORT INFORMATION
  Report Type: Spontaneous
  Country: US (occurrence: None)
  Receive Date: 20211124
  Receipt Date: 20211124
  Transmission Date: 20220304
  Serious: Yes (Hospitalization)
  Sender: FDA-Public Use
  Company Number: None

PATIENT
  Sex: Male
  Weight: 87 kg

DRUGS (1)
  1. ERBITUX [Suspect]
     Active Substance: CETUXIMAB
     Dates: end: 20210202

REACTIONS (5)
  - Urinary retention [None]
  - Electrocardiogram QT shortened [None]
  - Blood electrolytes abnormal [None]
  - Fungal infection [None]
  - Catheter site swelling [None]

NARRATIVE: CASE EVENT DATE: 20210920
